FAERS Safety Report 7469918-X (Version None)
Quarter: 2011Q2

REPORT INFORMATION
  Report Type: 
  Country: None (occurrence: None)
  Receive Date: 20110510
  Receipt Date: 20110131
  Transmission Date: 20111010
  Serious: Yes (Death, Other)
  Sender: FDA-Public Use
  Company Number: DE-ROCHE-757591

PATIENT
  Sex: Male

DRUGS (4)
  1. PREDNISOLONE [Suspect]
     Dosage: TAPERED TO 0 WITHIN 6 MONTHS.
     Route: 065
  2. MYCOPHENOLATE MOFETIL [Suspect]
     Route: 065
  3. SIMULECT [Suspect]
     Dosage: ON DAYS 0 AND 4.
     Route: 065
  4. CYCLOSPORINE [Suspect]
     Route: 042

REACTIONS (4)
  - ABDOMINAL ABSCESS [None]
  - MULTI-ORGAN FAILURE [None]
  - ENTEROCOCCAL INFECTION [None]
  - RESPIRATORY FAILURE [None]
